FAERS Safety Report 8561609-7 (Version None)
Quarter: 2012Q3

REPORT INFORMATION
  Report Type: 
  Country: None (occurrence: None)
  Receive Date: 20120802
  Receipt Date: 20120720
  Transmission Date: 20120928
  Serious: No
  Sender: FDA-Public Use
  Company Number: US-ASTRAZENECA-2012SE51224

PATIENT
  Age: 76 Year
  Sex: Female
  Weight: 104.3 kg

DRUGS (4)
  1. CRESTOR [Suspect]
     Indication: BLOOD CHOLESTEROL INCREASED
     Route: 048
  2. INDERAL [Concomitant]
     Indication: MIGRAINE
  3. VITAMIN TAB [Concomitant]
  4. INDERAL [Concomitant]
     Indication: HEADACHE

REACTIONS (3)
  - TREMOR [None]
  - HEADACHE [None]
  - MIGRAINE [None]
